FAERS Safety Report 7843093-1 (Version None)
Quarter: 2011Q4

REPORT INFORMATION
  Report Type: 
  Country: None (occurrence: None)
  Receive Date: 20111025
  Receipt Date: 20111020
  Transmission Date: 20120403
  Serious: No
  Sender: FDA-Public Use
  Company Number: US-PFIZER INC-2011254452

PATIENT
  Sex: Female

DRUGS (2)
  1. PRISTIQ [Suspect]
     Dosage: 100 MG
  2. PRISTIQ [Suspect]
     Dosage: 50 MG
     Dates: start: 20000101

REACTIONS (2)
  - CRYING [None]
  - FEELING ABNORMAL [None]
